FAERS Safety Report 6555126-3 (Version None)
Quarter: 2010Q1

REPORT INFORMATION
  Report Type: 
  Country: None (occurrence: None)
  Receive Date: 20100126
  Receipt Date: 20100126
  Transmission Date: 20100710
  Serious: Yes (Other)
  Sender: FDA-Public Use
  Company Number: None

PATIENT
  Age: 58 Year
  Sex: Male

DRUGS (2)
  1. SULINDAC [Suspect]
     Indication: ANTIINFLAMMATORY THERAPY
     Dosage: 1 TWCE DAILY STILL STROKE
     Dates: start: 20090924
  2. SULINDAC [Suspect]
     Indication: PLANTAR FASCIITIS
     Dosage: 1 TWCE DAILY STILL STROKE
     Dates: start: 20090924

REACTIONS (1)
  - CEREBROVASCULAR ACCIDENT [None]
